FAERS Safety Report 25282308 (Version 1)
Quarter: 2025Q2

REPORT INFORMATION
  Report Type: Spontaneous
  Country: ID (occurrence: ID)
  Receive Date: 20250508
  Receipt Date: 20250508
  Transmission Date: 20250716
  Serious: Yes (Hospitalization)
  Sender: ASTELLAS
  Company Number: ID-ASTELLAS-2025-AER-024658

PATIENT
  Age: 69 Year
  Sex: Male

DRUGS (1)
  1. XTANDI [Suspect]
     Active Substance: ENZALUTAMIDE
     Indication: Hormone-dependent prostate cancer
     Route: 050

REACTIONS (4)
  - Haemoglobin decreased [Unknown]
  - Asthenia [Unknown]
  - Gait inability [Unknown]
  - Cyanosis [Unknown]
